FAERS Safety Report 9640547 (Version 1)
Quarter: 2013Q4

REPORT INFORMATION
  Report Type: Report from Study
  Country: US (occurrence: US)
  Receive Date: 20131023
  Receipt Date: 20131023
  Transmission Date: 20140711
  Serious: No
  Sender: FDA-Public Use
  Company Number: US-ABBVIE-13P-163-1051856-00

PATIENT
  Age: 34 Year
  Sex: Female
  Weight: 72.64 kg

DRUGS (4)
  1. LUPRON DEPOT [Suspect]
     Indication: ENDOMETRIOSIS
     Route: 030
     Dates: start: 20121115
  2. IBUPROFEN [Concomitant]
     Indication: MUSCLE SPASMS
     Route: 048
  3. IBUPROFEN [Concomitant]
     Indication: PAIN
  4. OXYCODONE [Concomitant]
     Indication: PROCEDURAL PAIN

REACTIONS (8)
  - Metrorrhagia [Recovered/Resolved]
  - Haemorrhage [Recovered/Resolved]
  - Metrorrhagia [Recovered/Resolved]
  - Haemorrhage [Recovered/Resolved]
  - Pain [Recovered/Resolved]
  - Hot flush [Recovered/Resolved]
  - Vulvovaginal dryness [Recovering/Resolving]
  - Mood altered [Recovering/Resolving]
